FAERS Safety Report 23556439 (Version 1)
Quarter: 2024Q1

REPORT INFORMATION
  Report Type: Spontaneous
  Country: US (occurrence: US)
  Receive Date: 20240223
  Receipt Date: 20240223
  Transmission Date: 20240410
  Serious: No
  Sender: FDA-Public Use
  Company Number: US-ELI_LILLY_AND_COMPANY-US202402012257

PATIENT
  Age: 59 Year
  Sex: Female

DRUGS (2)
  1. VERZENIO [Suspect]
     Active Substance: ABEMACICLIB
     Indication: Breast neoplasm
     Dosage: 100 MG, BID
     Route: 065
     Dates: start: 20231016
  2. VERZENIO [Suspect]
     Active Substance: ABEMACICLIB
     Dosage: 100 MG, DAILY
     Route: 065

REACTIONS (2)
  - Pruritus [Recovered/Resolved]
  - Diarrhoea [Recovered/Resolved]
